FAERS Safety Report 5198843-2 (Version None)
Quarter: 2007Q1

REPORT INFORMATION
  Report Type: 
  Country: None (occurrence: None)
  Receive Date: 20070104
  Receipt Date: 20061227
  Transmission Date: 20070707
  Serious: Yes (Other)
  Sender: FDA-Public Use
  Company Number: PHEH2006US15530

PATIENT
  Age: 41 Year
  Sex: Male

DRUGS (2)
  1. CLOZARIL [Suspect]
     Indication: SCHIZOPHRENIA
     Dosage: 300 MG, QD
     Route: 048
     Dates: start: 20010101
  2. CLOZARIL [Suspect]
     Dosage: 100 MG INCREASE/WEEK UP TO 800 MG/D
     Route: 048

REACTIONS (4)
  - FRUSTRATION [None]
  - MUSCLE TWITCHING [None]
  - OBSESSIVE THOUGHTS [None]
  - SUICIDAL IDEATION [None]
